FAERS Safety Report 9639817 (Version 1)
Quarter: 2013Q4

REPORT INFORMATION
  Report Type: Spontaneous
  Country: US (occurrence: None)
  Receive Date: 20131021
  Receipt Date: 20131021
  Transmission Date: 20140711
  Serious: Yes (Life-Threatening, Disabling)
  Sender: FDA-Public Use
  Company Number: None

PATIENT
  Age: 48 Year
  Sex: Female
  Weight: 78.93 kg

DRUGS (1)
  1. VENLAFAXINE [Suspect]
     Indication: DEPRESSION
     Route: 048
     Dates: start: 20130724, end: 20131018

REACTIONS (8)
  - Asthenia [None]
  - Narcolepsy [None]
  - Cataplexy [None]
  - Sleep paralysis [None]
  - Cerebrovascular accident [None]
  - Convulsion [None]
  - Abdominal distension [None]
  - Depression [None]
